FAERS Safety Report 5804477-6 (Version None)
Quarter: 2008Q3

REPORT INFORMATION
  Report Type: 
  Country: None (occurrence: None)
  Receive Date: 20080709
  Receipt Date: 20080704
  Transmission Date: 20090109
  Serious: Yes (Hospitalization)
  Sender: FDA-Public Use
  Company Number: B0524968A

PATIENT
  Age: 87 Year
  Sex: Female

DRUGS (3)
  1. VALTREX [Suspect]
     Indication: HERPES ZOSTER
     Dosage: 1000MG THREE TIMES PER DAY
     Route: 048
     Dates: start: 20080501, end: 20080505
  2. AMLODIPINE [Concomitant]
     Dosage: 8MG PER DAY
     Route: 048
  3. DIOVAN [Concomitant]
     Dosage: 80MG PER DAY
     Route: 048

REACTIONS (6)
  - ABNORMAL BEHAVIOUR [None]
  - ANOREXIA [None]
  - DECREASED APPETITE [None]
  - DYSARTHRIA [None]
  - ENCEPHALOPATHY [None]
  - RENAL FAILURE ACUTE [None]
